FAERS Safety Report 7132762-7 (Version None)
Quarter: 2010Q4

REPORT INFORMATION
  Report Type: 
  Country: None (occurrence: None)
  Receive Date: 20101202
  Receipt Date: 20101123
  Transmission Date: 20110411
  Serious: No
  Sender: FDA-Public Use
  Company Number: US-PFIZER INC-2010156303

PATIENT
  Age: 50 Year
  Sex: Female

DRUGS (5)
  1. LIPITOR [Suspect]
     Indication: BLOOD CHOLESTEROL INCREASED
     Dosage: 10 MG, 1X/DAY
     Route: 048
     Dates: start: 20091101
  2. CENTRUM SILVER [Concomitant]
     Dosage: UNK
     Route: 048
  3. CALCIUM WITH VITAMIN D [Concomitant]
     Dosage: UNK
     Route: 048
  4. COENZYME Q10 [Concomitant]
     Indication: AMNESIA
     Dosage: 50 MG, 1X/DAY
     Route: 048
  5. FISH OIL [Concomitant]
     Dosage: UNK
     Route: 048

REACTIONS (3)
  - FATIGUE [None]
  - HYPOAESTHESIA [None]
  - MYALGIA [None]
